FAERS Safety Report 22108413 (Version 6)
Quarter: 2024Q3

REPORT INFORMATION
  Report Type: Report from Study
  Country: DE (occurrence: DE)
  Receive Date: 20230317
  Receipt Date: 20240704
  Transmission Date: 20241016
  Serious: Yes (Other)
  Sender: PUMA
  Company Number: DE-PFM-2021-00910

PATIENT

DRUGS (5)
  1. NERATINIB [Suspect]
     Active Substance: NERATINIB
     Indication: Breast cancer
     Dosage: 240 MG/DAY
     Route: 048
     Dates: start: 20201024
  2. NERATINIB [Suspect]
     Active Substance: NERATINIB
     Dosage: 240 MG
     Route: 048
     Dates: start: 20201211, end: 20211018
  3. TAMOXIFEN [Concomitant]
     Active Substance: TAMOXIFEN
     Indication: Breast cancer
     Dosage: UNK
     Route: 065
     Dates: start: 202008
  4. LEVOTHYROXINE SODIUM [Concomitant]
     Active Substance: LEVOTHYROXINE SODIUM
     Indication: Hypothyroidism
     Dosage: 100 MG, QD (1/DAY)
     Route: 048
     Dates: start: 2019
  5. LOPERAMIDE [Concomitant]
     Active Substance: LOPERAMIDE
     Indication: Prophylaxis against diarrhoea
     Dosage: 2 PILL PRN (AS NEEDED)
     Route: 048
     Dates: start: 20201024, end: 20211018

REACTIONS (6)
  - Diarrhoea [Recovered/Resolved]
  - Neuropathy peripheral [Unknown]
  - Nausea [Recovered/Resolved]
  - Nail infection [Not Recovered/Not Resolved]
  - Abdominal pain upper [Recovered/Resolved]
  - Rash [Recovered/Resolved]

NARRATIVE: CASE EVENT DATE: 20201026
